FAERS Safety Report 15733408 (Version 1)
Quarter: 2018Q4

REPORT INFORMATION
  Report Type: Spontaneous
  Country: FR (occurrence: FR)
  Receive Date: 20181218
  Receipt Date: 20181218
  Transmission Date: 20190205
  Serious: Yes (Hospitalization)
  Sender: FDA-Public Use
  Company Number: FR-TEVA-2018-FR-987093

PATIENT
  Age: 25 Year
  Sex: Male

DRUGS (5)
  1. PREDNISONE. [Suspect]
     Active Substance: PREDNISONE
     Indication: NON-HODGKIN^S LYMPHOMA
     Route: 048
     Dates: start: 20180710, end: 20180918
  2. ENDOXAN [Suspect]
     Active Substance: CYCLOPHOSPHAMIDE
     Indication: NON-HODGKIN^S LYMPHOMA
     Route: 042
     Dates: start: 20180710, end: 20180918
  3. DOXORUBICINE [Suspect]
     Active Substance: DOXORUBICIN
     Indication: NON-HODGKIN^S LYMPHOMA
     Route: 042
     Dates: start: 20180710, end: 20180918
  4. VINCRISTINE (SULFATE DE) [Suspect]
     Active Substance: VINCRISTINE SULFATE
     Indication: NON-HODGKIN^S LYMPHOMA
     Route: 042
     Dates: start: 20180710, end: 20180918
  5. TRUXIMA [Suspect]
     Active Substance: RITUXIMAB-ABBS
     Indication: NON-HODGKIN^S LYMPHOMA
     Route: 042
     Dates: start: 20180710, end: 20180918

REACTIONS (2)
  - Infection in an immunocompromised host [Recovering/Resolving]
  - Pneumocystis jirovecii pneumonia [Recovering/Resolving]

NARRATIVE: CASE EVENT DATE: 201810
